FAERS Safety Report 9768831 (Version 1)
Quarter: 2013Q4

REPORT INFORMATION
  Report Type: Spontaneous
  Country: US (occurrence: US)
  Receive Date: 20131218
  Receipt Date: 20131218
  Transmission Date: 20140711
  Serious: Yes (Other)
  Sender: FDA-Public Use
  Company Number: US-BRISTOL-MYERS SQUIBB COMPANY-19900299

PATIENT
  Age: 5 Decade
  Sex: Male

DRUGS (2)
  1. BYDUREON [Suspect]
  2. VICTOZA [Suspect]

REACTIONS (1)
  - Pancreatitis [Unknown]
